FAERS Safety Report 17181146 (Version 2)
Quarter: 2020Q1

REPORT INFORMATION
  Report Type: Spontaneous
  Country: US (occurrence: US)
  Receive Date: 20191220
  Receipt Date: 20200129
  Transmission Date: 20200409
  Serious: No
  Sender: FDA-Public Use
  Company Number: US-GLAXOSMITHKLINE-US2019AMR226866

PATIENT
  Age: 21 Year
  Sex: Female
  Weight: 69.4 kg

DRUGS (2)
  1. BENLYSTA [Suspect]
     Active Substance: BELIMUMAB
     Indication: SYSTEMIC LUPUS ERYTHEMATOSUS
     Dosage: 600 G
     Route: 042
     Dates: start: 20190813, end: 20190813
  2. BENLYSTA [Suspect]
     Active Substance: BELIMUMAB
     Dosage: 600 G
     Route: 042
     Dates: start: 20191220

REACTIONS (1)
  - Product dose omission [Unknown]

NARRATIVE: CASE EVENT DATE: 201912
